FAERS Safety Report 7705552-1 (Version None)
Quarter: 2011Q3

REPORT INFORMATION
  Report Type: 
  Country: None (occurrence: None)
  Receive Date: 20110824
  Receipt Date: 20110819
  Transmission Date: 20111222
  Serious: Yes (Hospitalization, Other)
  Sender: FDA-Public Use
  Company Number: AR-AMGEN-ARGSP2011040991

PATIENT
  Age: 65 Year
  Sex: Female
  Weight: 38 kg

DRUGS (1)
  1. ENBREL [Suspect]
     Indication: RHEUMATOID ARTHRITIS
     Dosage: 50 MG, WEEKLY
     Route: 058
     Dates: start: 20110405, end: 20110713

REACTIONS (2)
  - RESPIRATORY FATIGUE [None]
  - PNEUMONIA [None]
